FAERS Safety Report 8571552-5 (Version None)
Quarter: 2012Q3

REPORT INFORMATION
  Report Type: 
  Country: None (occurrence: None)
  Receive Date: 20120806
  Receipt Date: 20120731
  Transmission Date: 20120928
  Serious: Yes (Hospitalization, Other)
  Sender: FDA-Public Use
  Company Number: PHHY2012BR057925

PATIENT
  Sex: Male

DRUGS (3)
  1. METOPROLOL SUCCINATE [Concomitant]
     Indication: DYSURIA
     Dosage: 1 DF, UNK
     Route: 048
  2. ASPIRIN [Concomitant]
     Dosage: 1 DF, DAILY
     Route: 048
  3. AMLODOPINE BESYLATE AND VALSARTAN [Suspect]
     Dosage: 160/5 MG

REACTIONS (2)
  - ANGINA PECTORIS [None]
  - HYPERTENSION [None]
